FAERS Safety Report 5940912-0 (Version None)
Quarter: 2008Q4

REPORT INFORMATION
  Report Type: 
  Country: None (occurrence: None)
  Receive Date: 20081104
  Receipt Date: 20081021
  Transmission Date: 20090506
  Serious: Yes (Life-Threatening, Hospitalization, Other)
  Sender: FDA-Public Use
  Company Number: US-ELI_LILLY_AND_COMPANY-US200809002696

PATIENT
  Sex: Female
  Weight: 70.748 kg

DRUGS (9)
  1. BYETTA [Suspect]
     Indication: TYPE 2 DIABETES MELLITUS
     Dosage: 10 UG, UNKNOWN
     Dates: start: 20060401, end: 20060501
  2. BYETTA [Suspect]
     Dosage: 10 UG, 2/D
     Dates: start: 20060501, end: 20080505
  3. METFORMIN HCL [Concomitant]
     Indication: DIABETES MELLITUS
     Dosage: 850 MG, 2/D
     Dates: start: 20040101, end: 20080501
  4. GLIMEPIRIDE [Concomitant]
     Indication: DIABETES MELLITUS
     Dosage: 2.5 MG, UNK
     Dates: start: 20040101, end: 20080501
  5. VYTORIN [Concomitant]
     Indication: BLOOD CHOLESTEROL
     Dosage: UNK, UNKNOWN
  6. TRAZODONE HCL [Concomitant]
     Dosage: 100 MG, EACH EVENING
  7. LEVOXYL [Concomitant]
     Dosage: 0.112 MG, UNKNOWN
  8. TRICOR [Concomitant]
     Dosage: 145 MG, UNKNOWN
  9. NORVASC [Concomitant]
     Dosage: 5 MG, EACH MORNING

REACTIONS (5)
  - BLOOD GLUCOSE ABNORMAL [None]
  - CHOLELITHIASIS [None]
  - PANCREATITIS [None]
  - TRACHEAL INJURY [None]
  - WEIGHT DECREASED [None]
